FAERS Safety Report 14742406 (Version 2)
Quarter: 2018Q2

REPORT INFORMATION
  Report Type: Report from Study
  Country: None (occurrence: US)
  Receive Date: 20180410
  Receipt Date: 20180518
  Transmission Date: 20180711
  Serious: Yes (Hospitalization)
  Sender: FDA-Public Use
  Company Number: US-BAUSCH-BL-2018-009864

PATIENT
  Sex: Female

DRUGS (3)
  1. APRISO [Suspect]
     Active Substance: MESALAMINE
     Route: 048
     Dates: start: 201803, end: 2018
  2. UCERIS [Suspect]
     Active Substance: BUDESONIDE
     Indication: COLITIS
     Route: 048
     Dates: start: 20180406, end: 20180511
  3. APRISO [Suspect]
     Active Substance: MESALAMINE
     Indication: COLITIS
     Dosage: 2 YEARS AGO
     Route: 048
     Dates: start: 2016

REACTIONS (4)
  - Constipation [Recovered/Resolved]
  - Abdominal pain [Recovered/Resolved]
  - Treatment noncompliance [Recovered/Resolved]
  - Insurance issue [Recovered/Resolved]
